FAERS Safety Report 15726547 (Version 1)
Quarter: 2018Q4

REPORT INFORMATION
  Report Type: Spontaneous
  Country: US (occurrence: US)
  Receive Date: 20181217
  Receipt Date: 20181217
  Transmission Date: 20190205
  Serious: No
  Sender: FDA-Public Use
  Company Number: US-NOVOPROD-573551

PATIENT
  Age: 58 Year
  Sex: Female
  Weight: 83.9 kg

DRUGS (2)
  1. LEVEMIR [Suspect]
     Active Substance: INSULIN DETEMIR
     Indication: TYPE 2 DIABETES MELLITUS
     Dosage: 10 U, QD
     Route: 058
     Dates: end: 201711
  2. LEVEMIR [Suspect]
     Active Substance: INSULIN DETEMIR
     Dosage: 60 U, QD
     Route: 058
     Dates: start: 201711

REACTIONS (4)
  - Hepatic enzyme increased [Recovered/Resolved]
  - Eosinophil count increased [Recovered/Resolved]
  - Glycosylated haemoglobin increased [Recovered/Resolved]
  - Blood glucose increased [Recovered/Resolved]

NARRATIVE: CASE EVENT DATE: 20171103
